FAERS Safety Report 14124548 (Version 2)
Quarter: 2017Q4

REPORT INFORMATION
  Report Type: Spontaneous
  Country: US (occurrence: US)
  Receive Date: 20171025
  Receipt Date: 20171121
  Transmission Date: 20180321
  Serious: Yes (Death)
  Sender: FDA-Public Use
  Company Number: US-FRESENIUS MEDICAL CARE RENAL THERAPIES GROUP-FMC-1710-001272

PATIENT
  Age: 67 Year
  Sex: Male

DRUGS (19)
  1. MELATONIN [Concomitant]
     Active Substance: MELATONIN
  2. PREDNISONE. [Concomitant]
     Active Substance: PREDNISONE
  3. CYCLOBENZAPRINE HCL [Concomitant]
     Active Substance: CYCLOBENZAPRINE HYDROCHLORIDE
  4. RUXOLITINIB PHOSPHATE [Concomitant]
     Active Substance: RUXOLITINIB PHOSPHATE
  5. METOPROLOL SUCCINATE. [Concomitant]
     Active Substance: METOPROLOL SUCCINATE
  6. GABAPENTIN. [Concomitant]
     Active Substance: GABAPENTIN
  7. CALCIUM CARBONATE. [Concomitant]
     Active Substance: CALCIUM CARBONATE
  8. HUMALOG [Concomitant]
     Active Substance: INSULIN LISPRO
  9. HEPARIN [Concomitant]
     Active Substance: HEPARIN SODIUM
  10. NOVOLIN [Concomitant]
     Active Substance: INSULIN HUMAN
  11. ASPRIN [Concomitant]
     Active Substance: ASPIRIN
  12. FUROSEMIDE. [Concomitant]
     Active Substance: FUROSEMIDE
  13. MIRALAX [Concomitant]
     Active Substance: POLYETHYLENE GLYCOL 3350
  14. SYNTHROID [Concomitant]
     Active Substance: LEVOTHYROXINE SODIUM
  15. DELFLEX [Suspect]
     Active Substance: CALCIUM CHLORIDE\DEXTROSE\MAGNESIUM CHLORIDE\SODIUM CHLORIDE\SODIUM LACTATE
     Indication: END STAGE RENAL DISEASE
     Route: 033
  16. SEVELAMER CARBONATE. [Concomitant]
     Active Substance: SEVELAMER CARBONATE
  17. CHOLECALCIFEROL [Concomitant]
     Active Substance: CHOLECALCIFEROL
  18. ACETAMINOPHEN. [Concomitant]
     Active Substance: ACETAMINOPHEN
  19. ANAGRELIDE HCL [Concomitant]
     Active Substance: ANAGRELIDE HYDROCHLORIDE

REACTIONS (2)
  - Pneumonia [Fatal]
  - Pain [Unknown]

NARRATIVE: CASE EVENT DATE: 20170905
